FAERS Safety Report 17160333 (Version 3)
Quarter: 2020Q1

REPORT INFORMATION
  Report Type: Report from Study
  Country: CA (occurrence: CA)
  Receive Date: 20191216
  Receipt Date: 20200129
  Transmission Date: 20200409
  Serious: Yes (Other)
  Sender: FDA-Public Use
  Company Number: CA-BRISTOL-MYERS SQUIBB COMPANY-BMS-2019-030737

PATIENT
  Age: 61 Year
  Sex: Female

DRUGS (3)
  1. ABATACEPT [Suspect]
     Active Substance: ABATACEPT
     Indication: RHEUMATOID ARTHRITIS
     Dosage: 750 MILLIGRAM, Q4WK
     Route: 042
     Dates: start: 20190223
  2. PREDNISONE. [Concomitant]
     Active Substance: PREDNISONE
     Indication: PRODUCT USED FOR UNKNOWN INDICATION
     Dosage: UNK
     Route: 065
  3. CELEBREX [Concomitant]
     Active Substance: CELECOXIB
     Indication: PRODUCT USED FOR UNKNOWN INDICATION
     Route: 065

REACTIONS (15)
  - Fatigue [Unknown]
  - Compression fracture [Unknown]
  - Peripheral swelling [Unknown]
  - Productive cough [Recovering/Resolving]
  - Fall [Unknown]
  - Pain [Recovered/Resolved]
  - Heart rate increased [Unknown]
  - Arthralgia [Unknown]
  - Burning sensation [Unknown]
  - Nasopharyngitis [Unknown]
  - Inflammation [Recovered/Resolved]
  - Diarrhoea [Recovered/Resolved]
  - Rheumatoid arthritis [Unknown]
  - Pain in extremity [Unknown]
  - Back pain [Unknown]

NARRATIVE: CASE EVENT DATE: 20190323
